FAERS Safety Report 14574583 (Version 1)
Quarter: 2018Q1

REPORT INFORMATION
  Report Type: Spontaneous
  Country: US (occurrence: US)
  Receive Date: 20180224
  Receipt Date: 20180224
  Transmission Date: 20180509
  Serious: Yes (Other)
  Sender: FDA-Public Use
  Company Number: None

PATIENT
  Age: 50 Year
  Sex: Female
  Weight: 58.5 kg

DRUGS (4)
  1. DORSAL [Concomitant]
     Dates: start: 20180110, end: 20180124
  2. NEURALIN [Concomitant]
     Dates: start: 20180110, end: 20180110
  3. LYRICA [Suspect]
     Active Substance: PREGABALIN
     Indication: SCIATICA
     Route: 048
     Dates: start: 20180110, end: 20180224
  4. OMEPRAZOLE. [Concomitant]
     Active Substance: OMEPRAZOLE
     Dates: start: 20180110, end: 20180124

REACTIONS (5)
  - Swollen tongue [None]
  - Swelling [None]
  - Mouth swelling [None]
  - Lip swelling [None]
  - Swelling face [None]

NARRATIVE: CASE EVENT DATE: 20180110
